FAERS Safety Report 21099440 (Version 2)
Quarter: 2022Q3

REPORT INFORMATION
  Report Type: Spontaneous
  Country: FR (occurrence: FR)
  Receive Date: 20220719
  Receipt Date: 20220721
  Transmission Date: 20221026
  Serious: Yes (Other)
  Sender: FDA-Public Use
  Company Number: None

PATIENT
  Age: 77 Year
  Sex: Female

DRUGS (6)
  1. MEKTOVI [Suspect]
     Active Substance: BINIMETINIB
     Indication: Metastatic malignant melanoma
     Dosage: 90 MG, QD (1/DAY), 45*2/J
     Route: 048
     Dates: start: 20191217, end: 20210420
  2. MEKTOVI [Suspect]
     Active Substance: BINIMETINIB
     Dosage: 60 MG, QD (1/DAY)
     Route: 048
     Dates: start: 20210421, end: 20210601
  3. MEKTOVI [Suspect]
     Active Substance: BINIMETINIB
     Dosage: 30 MG, QD (1/DAY)
     Route: 048
     Dates: start: 20210602
  4. BRAFTOVI [Suspect]
     Active Substance: ENCORAFENIB
     Indication: Metastatic malignant melanoma
     Dosage: 450 MG, QD (1/DAY)
     Route: 048
     Dates: start: 20191217, end: 20210420
  5. BRAFTOVI [Suspect]
     Active Substance: ENCORAFENIB
     Dosage: 300 MG, QD (1/DAY)
     Route: 048
     Dates: start: 20210421, end: 20210601
  6. BRAFTOVI [Suspect]
     Active Substance: ENCORAFENIB
     Dosage: 200 MG, QD (1/DAY)
     Route: 048
     Dates: start: 20210602

REACTIONS (1)
  - Venous thrombosis [Recovering/Resolving]

NARRATIVE: CASE EVENT DATE: 20220328
